FAERS Safety Report 26090882 (Version 1)
Quarter: 2025Q4

REPORT INFORMATION
  Report Type: Spontaneous
  Country: CN (occurrence: CN)
  Receive Date: 20251126
  Receipt Date: 20251126
  Transmission Date: 20260117
  Serious: Yes (Other)
  Sender: SANDOZ
  Company Number: CN-002147023-NVSC2025CN180511

PATIENT
  Age: 7 Year
  Sex: Male
  Weight: 41.5 kg

DRUGS (9)
  1. MYCOPHENOLATE MOFETIL [Suspect]
     Active Substance: MYCOPHENOLATE MOFETIL
     Indication: Tubulointerstitial nephritis and uveitis syndrome
     Dosage: 1 G, QD (0.5 G, BID)
     Route: 065
  2. PREDNISOLONE [Suspect]
     Active Substance: PREDNISOLONE
     Dosage: 20 MG, QD
     Route: 048
  3. PREDNISOLONE [Suspect]
     Active Substance: PREDNISOLONE
     Dosage: 30 MG, QD
     Route: 048
     Dates: start: 20240226
  4. PREDNISOLONE [Suspect]
     Active Substance: PREDNISOLONE
     Dosage: 40 MG, QD
     Route: 048
     Dates: start: 20240303
  5. PREDNISOLONE [Suspect]
     Active Substance: PREDNISOLONE
     Indication: Tubulointerstitial nephritis
     Dosage: 45 MG, QD
     Route: 048
     Dates: start: 20231015
  6. PREDNISOLONE [Suspect]
     Active Substance: PREDNISOLONE
     Dosage: 5 MG, QD
     Route: 048
     Dates: start: 20250226
  7. PREDNISOLONE [Suspect]
     Active Substance: PREDNISOLONE
     Indication: Tubulointerstitial nephritis and uveitis syndrome
     Dosage: UNK (TAPER OF 5MG EVERY 1-2 WEEKS)
     Route: 048
  8. TOBRAMYCIN AND DEXAMETHASONE [Suspect]
     Active Substance: DEXAMETHASONE\TOBRAMYCIN
     Indication: Iridocyclitis
     Dosage: UNK
     Route: 065
  9. TROPICAMIDE [Suspect]
     Active Substance: TROPICAMIDE
     Indication: Tubulointerstitial nephritis and uveitis syndrome
     Dosage: UNK
     Route: 065

REACTIONS (2)
  - Uveitis [Unknown]
  - Drug ineffective [Unknown]
